FAERS Safety Report 9944246 (Version 1)
Quarter: 2014Q1

REPORT INFORMATION
  Report Type: Report from Study
  Country: US (occurrence: US)
  Receive Date: 20140303
  Receipt Date: 20140303
  Transmission Date: 20141002
  Serious: No
  Sender: FDA-Public Use
  Company Number: US-ABBVIE-13P-163-1056852-00

PATIENT
  Age: 50 Year
  Sex: Female
  Weight: 52.21 kg

DRUGS (6)
  1. HUMIRA [Suspect]
     Indication: PRODUCT USED FOR UNKNOWN INDICATION
     Dosage: FIRST LOADING DOSE
     Route: 058
     Dates: start: 20130205, end: 20130205
  2. HUMIRA [Suspect]
     Dosage: SECOND LOADING DOSE
     Route: 058
     Dates: start: 20130219
  3. FOLIC ACID [Concomitant]
     Indication: PRODUCT USED FOR UNKNOWN INDICATION
  4. IRON [Concomitant]
     Indication: PRODUCT USED FOR UNKNOWN INDICATION
  5. MULTIPLE VITAMIN [Concomitant]
     Indication: PRODUCT USED FOR UNKNOWN INDICATION
  6. VITAMIN D3 [Concomitant]
     Indication: PRODUCT USED FOR UNKNOWN INDICATION

REACTIONS (1)
  - Injection site pain [Recovered/Resolved]
